FAERS Safety Report 5064655-3 (Version None)
Quarter: 2006Q3

REPORT INFORMATION
  Report Type: 
  Country: None (occurrence: None)
  Receive Date: 20060728
  Receipt Date: 20060628
  Transmission Date: 20061208
  Serious: Yes (Hospitalization, Other)
  Sender: FDA-Public Use
  Company Number: PHBS2006JP09828

PATIENT
  Age: 7 Year
  Sex: Male
  Weight: 25 kg

DRUGS (2)
  1. ZADITEN [Suspect]
     Indication: DERMATITIS ATOPIC
     Dosage: 0.6G/DAY
     Route: 048
     Dates: start: 20010101, end: 20060623
  2. KLARICID [Concomitant]
     Dosage: 2 DF/DAY
     Route: 048
     Dates: start: 20060618, end: 20060624

REACTIONS (6)
  - ALANINE AMINOTRANSFERASE INCREASED [None]
  - ASPARTATE AMINOTRANSFERASE INCREASED [None]
  - LIVER DISORDER [None]
  - LYMPHADENOPATHY [None]
  - NASOPHARYNGITIS [None]
  - PYREXIA [None]
